FAERS Safety Report 22129038 (Version 2)
Quarter: 2023Q4

REPORT INFORMATION
  Report Type: Spontaneous
  Country: GE (occurrence: GE)
  Receive Date: 20230323
  Receipt Date: 20231227
  Transmission Date: 20240110
  Serious: Yes (Other)
  Sender: FDA-Public Use
  Company Number: US-ALKEM LABORATORIES LIMITED-US-ALKEM-2022-14365

PATIENT
  Age: 13 Month
  Sex: Male

DRUGS (1)
  1. VIGABATRIN [Suspect]
     Active Substance: VIGABATRIN
     Indication: Infantile spasms
     Dosage: 150 MILLIGRAM/KILOGRAM, QD
     Route: 065

REACTIONS (4)
  - Encephalopathy [Recovering/Resolving]
  - Magnetic resonance imaging head abnormal [Recovering/Resolving]
  - Dyskinesia [Recovering/Resolving]
  - Toxicity to various agents [Recovering/Resolving]
